FAERS Safety Report 23813080 (Version 2)
Quarter: 2025Q2

REPORT INFORMATION
  Report Type: Spontaneous
  Country: US (occurrence: US)
  Receive Date: 20240503
  Receipt Date: 20250506
  Transmission Date: 20250717
  Serious: Yes (Hospitalization)
  Sender: AMNEAL
  Company Number: US-AMNEAL PHARMACEUTICALS-2023-AMRX-02561

PATIENT

DRUGS (11)
  1. VIGABATRIN [Suspect]
     Active Substance: VIGABATRIN
     Indication: Muscle spasms
     Dosage: MIXED 2 PACKETS IN 20 ML OF WATER TAKING 16 ML THAT IS 800 MG VIA G TUBE TWICE DAILY
     Route: 048
     Dates: start: 20230223
  2. VIGABATRIN [Suspect]
     Active Substance: VIGABATRIN
     Dosage: 500 MG/PACKET, 90 ML TWICE A DAY
     Route: 065
     Dates: start: 20230321
  3. VIGABATRIN [Suspect]
     Active Substance: VIGABATRIN
     Dosage: 900 MILLIGRAM, BID (MIXED 2 PACKETS IN 20 ML OF WATER TAKING 18 ML THAT IS 900 MG VIA G TUBE TWICE D
     Route: 048
  4. LEVOTHYROXINE SODIUM [Concomitant]
     Active Substance: LEVOTHYROXINE SODIUM
     Indication: Product used for unknown indication
     Route: 048
  5. LEVETIRACETAM [Concomitant]
     Active Substance: LEVETIRACETAM
     Indication: Product used for unknown indication
     Route: 065
  6. POLYETHYLENE GLYCOL [Concomitant]
     Active Substance: POLYETHYLENE GLYCOL
     Indication: Product used for unknown indication
     Route: 065
  7. SYNTHROID [Concomitant]
     Active Substance: LEVOTHYROXINE SODIUM
     Indication: Product used for unknown indication
     Route: 065
  8. TAURINE [Concomitant]
     Active Substance: TAURINE
     Indication: Product used for unknown indication
     Route: 065
  9. KEPPRA [Concomitant]
     Active Substance: LEVETIRACETAM
     Indication: Product used for unknown indication
     Route: 065
  10. RUFINAMIDE [Concomitant]
     Active Substance: RUFINAMIDE
     Indication: Product used for unknown indication
     Route: 065
  11. FLOVENT [Concomitant]
     Active Substance: FLUTICASONE PROPIONATE
     Indication: Product used for unknown indication
     Route: 065

REACTIONS (4)
  - Seizure [Unknown]
  - Respiratory syncytial virus infection [Unknown]
  - Urinary tract infection [Unknown]
  - Muscle spasms [Unknown]

NARRATIVE: CASE EVENT DATE: 20241021
